FAERS Safety Report 17941415 (Version 1)
Quarter: 2020Q2

REPORT INFORMATION
  Report Type: Spontaneous
  Country: US (occurrence: US)
  Receive Date: 20200624
  Receipt Date: 20200624
  Transmission Date: 20200714
  Serious: Yes (Other)
  Sender: FDA-Public Use
  Company Number: None

PATIENT
  Age: 44 Year
  Sex: Female
  Weight: 63 kg

DRUGS (10)
  1. CLARITIN ANTIHISTAMINE [Suspect]
     Active Substance: LORATADINE
     Indication: HYPERSENSITIVITY
     Dosage: ?          QUANTITY:1 TABLET(S);?
     Route: 048
  2. VRYLAR [Concomitant]
  3. PRIVIGEN [Concomitant]
     Active Substance: HUMAN IMMUNOGLOBULIN G
  4. DOSTINEX [Concomitant]
     Active Substance: CABERGOLINE
  5. LAMICTAL [Concomitant]
     Active Substance: LAMOTRIGINE
  6. SYNTHROID [Concomitant]
     Active Substance: LEVOTHYROXINE SODIUM
  7. WELLBUTRIN [Concomitant]
     Active Substance: BUPROPION HYDROCHLORIDE
  8. KLONOPIN [Concomitant]
     Active Substance: CLONAZEPAM
  9. NEURONTIN [Concomitant]
     Active Substance: GABAPENTIN
  10. VITAMIN D3 [Concomitant]
     Active Substance: CHOLECALCIFEROL

REACTIONS (1)
  - Migraine [None]

NARRATIVE: CASE EVENT DATE: 20190603
